FAERS Safety Report 9223475 (Version 1)
Quarter: 2013Q2

REPORT INFORMATION
  Report Type: Spontaneous
  Country: GB (occurrence: GB)
  Receive Date: 20130410
  Receipt Date: 20130412
  Transmission Date: 20140414
  Serious: Yes (Hospitalization)
  Sender: FDA-Public Use
  Company Number: GB-PFIZER INC-GBWYE430326FEB06

PATIENT
  Age: 62 Year
  Sex: Male

DRUGS (4)
  1. ANADIN IBUPROFEN [Suspect]
     Indication: HIP ARTHROPLASTY
     Dosage: AS NECESSARY
     Route: 048
  2. ASPIRIN [Suspect]
     Indication: HIP ARTHROPLASTY
     Dosage: 150 MG, 1X/DAY
     Route: 048
     Dates: end: 20060206
  3. ATENOLOL [Concomitant]
     Indication: HYPERTENSION
     Dosage: 50 MG, 1X/DAY
     Route: 048
  4. BENDROFLUAZIDE [Concomitant]
     Indication: HYPERTENSION
     Dosage: 2.5 MG, 1X/DAY
     Route: 048

REACTIONS (2)
  - Erosive duodenitis [Unknown]
  - Gastrointestinal haemorrhage [Unknown]
